FAERS Safety Report 9434273 (Version 1)
Quarter: 2013Q3

REPORT INFORMATION
  Report Type: Report from Study
  Country: PH (occurrence: PH)
  Receive Date: 20130801
  Receipt Date: 20130801
  Transmission Date: 20140515
  Serious: Yes (Death)
  Sender: FDA-Public Use
  Company Number: PHHY2013PH081925

PATIENT
  Age: 64 Year
  Sex: Male

DRUGS (1)
  1. GLIVEC [Suspect]
     Dosage: 800 MG, UNK
     Route: 048
     Dates: start: 20130527

REACTIONS (1)
  - Death [Fatal]
